FAERS Safety Report 16172229 (Version 3)
Quarter: 2019Q3

REPORT INFORMATION
  Report Type: Report from Study
  Country: None (occurrence: IL)
  Receive Date: 20190409
  Receipt Date: 20190812
  Transmission Date: 20191004
  Serious: Yes (Other)
  Sender: FDA-Public Use
  Company Number: IL-ABBVIE-19S-082-2733421-00

PATIENT
  Age: 68 Year
  Sex: Male

DRUGS (2)
  1. DUODOPA [Suspect]
     Active Substance: CARBIDOPA\LEVODOPA
     Indication: PARKINSON^S DISEASE
     Dosage: CURRENT:MD 15ML, CD 3.5ML/HOUR, ED1.5ML
     Route: 050
     Dates: start: 20190331, end: 2019
  2. DUODOPA [Suspect]
     Active Substance: CARBIDOPA\LEVODOPA
     Dosage: MORNING DOSE- 15 ML, CONTINUOUS RATE- 3.7 ML/ HOUR,CURRENT EXTRA DOSE- 1.5 ML
     Route: 050

REACTIONS (8)
  - Fall [Recovered/Resolved]
  - Scratch [Unknown]
  - Musculoskeletal chest pain [Recovering/Resolving]
  - Fall [Recovering/Resolving]
  - Fall [Unknown]
  - Gait disturbance [Not Recovered/Not Resolved]
  - Balance disorder [Not Recovered/Not Resolved]
  - Musculoskeletal chest pain [Recovered/Resolved]

NARRATIVE: CASE EVENT DATE: 20190331
